FAERS Safety Report 9788847 (Version 1)
Quarter: 2013Q4

REPORT INFORMATION
  Report Type: Spontaneous
  Country: HR (occurrence: HR)
  Receive Date: 20131230
  Receipt Date: 20131230
  Transmission Date: 20140711
  Serious: Yes (Hospitalization, Other)
  Sender: FDA-Public Use
  Company Number: HR-TEVA-452949ISR

PATIENT
  Age: 89 Year
  Sex: Male
  Weight: 75 kg

DRUGS (9)
  1. SUMAMED [Suspect]
     Indication: DERMATITIS
     Route: 048
     Dates: start: 20130920, end: 20130922
  2. PLYMICOL [Interacting]
     Indication: FUNGAL SKIN INFECTION
     Route: 061
     Dates: start: 20130910, end: 20131002
  3. ZOTRAMID [Interacting]
     Dosage: 2 DOSAGE FORMS DAILY; DF: 37.5 MG TRAMADOL /325 MG PARACETAMOL
     Route: 048
     Dates: start: 20130920, end: 20131002
  4. BETRION [Interacting]
     Indication: DERMATITIS
     Route: 061
     Dates: start: 20130910, end: 20131002
  5. MARTEFARIN [Interacting]
     Indication: ATRIAL FIBRILLATION
     Route: 048
     Dates: start: 201304, end: 20130930
  6. DETRALEX [Interacting]
     Indication: VENOUS INSUFFICIENCY
     Dosage: 1000 MILLIGRAM DAILY;
     Route: 048
     Dates: start: 20130910, end: 20130930
  7. BELODERM KREMA [Interacting]
     Indication: DERMATITIS
     Route: 061
     Dates: start: 20130910, end: 20131002
  8. CONCOR COR [Concomitant]
     Indication: CARDIOMYOPATHY
     Dosage: 2.5 MILLIGRAM DAILY;
     Route: 048
     Dates: start: 201304
  9. EDEMID FORTE [Concomitant]
     Indication: CARDIOMYOPATHY
     Dosage: 125 MILLIGRAM DAILY;
     Route: 048
     Dates: start: 2009

REACTIONS (8)
  - Melaena [Recovered/Resolved]
  - Normochromic normocytic anaemia [Recovering/Resolving]
  - Haematoma [Recovering/Resolving]
  - International normalised ratio increased [Recovered/Resolved]
  - Haemoglobin decreased [Recovering/Resolving]
  - Haematocrit decreased [Recovering/Resolving]
  - Coagulopathy [Recovering/Resolving]
  - Drug interaction [Recovering/Resolving]
